FAERS Safety Report 8259714-8 (Version None)
Quarter: 2012Q2

REPORT INFORMATION
  Report Type: 
  Country: None (occurrence: None)
  Receive Date: 20120404
  Receipt Date: 20120323
  Transmission Date: 20120825
  Serious: Yes (Hospitalization, Other)
  Sender: FDA-Public Use
  Company Number: JP-BRISTOL-MYERS SQUIBB COMPANY-16481426

PATIENT
  Age: 29 Year
  Sex: Female
  Weight: 52 kg

DRUGS (3)
  1. CISPLATIN [Suspect]
     Dosage: SCHEDULED ON DAY 16 SKIPPED
  2. BLEOMYCIN SULFATE [Suspect]
     Dosage: SCHEDULED ON DAY 16 SKIPPED
  3. ETOPOSIDE [Suspect]
     Dosage: SCHEDULED ON DAY 16 SKIPPED

REACTIONS (6)
  - HAEMOGLOBIN DECREASED [None]
  - DIARRHOEA [None]
  - ILEUS [None]
  - PLATELET COUNT DECREASED [None]
  - WHITE BLOOD CELL COUNT DECREASED [None]
  - NAUSEA [None]
